FAERS Safety Report 23306041 (Version 1)
Quarter: 2023Q4

REPORT INFORMATION
  Report Type: Spontaneous
  Country: NL (occurrence: NL)
  Receive Date: 20231218
  Receipt Date: 20231218
  Transmission Date: 20240109
  Serious: Yes (Hospitalization)
  Sender: FDA-Public Use
  Company Number: None

PATIENT
  Age: 81 Year
  Weight: 75 kg

DRUGS (9)
  1. PREGABALIN [Suspect]
     Active Substance: PREGABALIN
     Indication: Product used for unknown indication
     Dosage: 1 PIECE TWICE A DAY
     Route: 065
     Dates: start: 20231007, end: 20231007
  2. CLOPIDOGREL BISULFATE [Concomitant]
     Active Substance: CLOPIDOGREL BISULFATE
     Route: 065
  3. PREDNISOLON TABLET  5MG / Brand name not specified [Concomitant]
     Route: 065
  4. PANTOPRAZOLE [Concomitant]
     Active Substance: PANTOPRAZOLE
     Route: 065
  5. PARACETAMOL TABLET  500MG / Brand name not specified [Concomitant]
     Route: 065
  6. COLECALCIFEROL CAPSULE    800IE / Brand name not specified [Concomitant]
     Dosage: 800 UNITS
     Route: 065
  7. METOPROLOL TABLET MGA  50MG (SUCCINAAT) / Brand name not specified [Concomitant]
     Route: 065
  8. IPRATROPIUM AEROSOL 20UG/DO / Brand name not specified [Concomitant]
     Dosage: AEROSOL, 20 ?G/DOSE (MICROGRAMS PER DOSE)
     Route: 065
  9. BECLOMET/FORMOT/GLYCOPYR AEROSOL 87/5/9UG/DO / Brand name not speci... [Concomitant]
     Dosage: AEROSOL, 87/5/9 ?G/DOSE (MICROGRAMS PER DOSE)
     Route: 065

REACTIONS (1)
  - Circulatory collapse [Recovered/Resolved]
